FAERS Safety Report 17905820 (Version 1)
Quarter: 2020Q2

REPORT INFORMATION
  Report Type: Report from Study
  Country: CA (occurrence: CA)
  Receive Date: 20200616
  Receipt Date: 20200616
  Transmission Date: 20200714
  Serious: Yes (Other)
  Sender: FDA-Public Use
  Company Number: CA-NALPROPION PHARMACEUTICALS INC.-2020-010077

PATIENT

DRUGS (9)
  1. VITAMIN B NOS [Concomitant]
     Active Substance: VITAMIN B
     Indication: ROUTINE HEALTH MAINTENANCE
     Dosage: 1 IN 1 D
     Route: 048
  2. CONTRAVE [Suspect]
     Active Substance: BUPROPION HYDROCHLORIDE\NALTREXONE HYDROCHLORIDE
     Dosage: ONE TABLET IN THE MORNING AND ONE TABLET IN EVENING
     Route: 048
     Dates: start: 20200309, end: 202003
  3. VITAMIN C [Concomitant]
     Active Substance: ASCORBIC ACID
     Indication: ROUTINE HEALTH MAINTENANCE
     Dosage: 1 IN 1 D
     Route: 048
  4. CONTRAVE [Suspect]
     Active Substance: BUPROPION HYDROCHLORIDE\NALTREXONE HYDROCHLORIDE
     Indication: WEIGHT CONTROL
     Dosage: ONE TABLET IN THE MORNING
     Route: 048
     Dates: start: 20200302, end: 202003
  5. CONTRAVE [Suspect]
     Active Substance: BUPROPION HYDROCHLORIDE\NALTREXONE HYDROCHLORIDE
     Dosage: TWO TABLETS IN THE MORNING AND ONE TABLET IN EVENING
     Route: 048
     Dates: start: 20200316, end: 202003
  6. CONTRAVE [Suspect]
     Active Substance: BUPROPION HYDROCHLORIDE\NALTREXONE HYDROCHLORIDE
     Dosage: TWO TABLETS IN THE MORNING AND TWO TABLETS IN EVENING, STARTED ON APPROXIMATELY 23/MAR/2020
     Route: 048
     Dates: start: 202003, end: 20200521
  7. CRESTOR [Concomitant]
     Active Substance: ROSUVASTATIN CALCIUM
     Indication: BLOOD CHOLESTEROL ABNORMAL
     Dosage: 5 MG, 1 IN 1 D
     Route: 048
  8. MYRBETRIQ [Concomitant]
     Active Substance: MIRABEGRON
     Indication: HYPERTONIC BLADDER
     Dosage: 25 MG, 1 IN 1 D
     Route: 048
  9. VITAMIN D                          /07503901/ [Concomitant]
     Active Substance: VITAMIN D NOS
     Indication: ROUTINE HEALTH MAINTENANCE
     Dosage: 1 IN 1 D
     Route: 048

REACTIONS (7)
  - Withdrawal syndrome [Recovered/Resolved]
  - Hyperhidrosis [Recovering/Resolving]
  - Gait disturbance [Recovered/Resolved]
  - Muscle contracture [Recovering/Resolving]
  - Muscle spasms [Recovering/Resolving]
  - Pain [Recovering/Resolving]
  - Therapeutic response unexpected [Unknown]

NARRATIVE: CASE EVENT DATE: 202005
